FAERS Safety Report 12862335 (Version 1)
Quarter: 2016Q4

REPORT INFORMATION
  Report Type: Spontaneous
  Country: US (occurrence: US)
  Receive Date: 20161018
  Receipt Date: 20161018
  Transmission Date: 20170207
  Serious: Yes (Other)
  Sender: FDA-Public Use
  Company Number: None

PATIENT
  Age: 43 Year
  Sex: Female
  Weight: 69.75 kg

DRUGS (4)
  1. T3/T4 THYROID HORMONES [Concomitant]
     Active Substance: LEVOTHYROXINE\LIOTHYRONINE
  2. SERMORELIN ACETATE/GHRP (2)+(6) [Suspect]
     Active Substance: GHRP-6\PRALMORELIN\SERMORELIN ACETATE
     Indication: PROPHYLAXIS
     Dosage: ?          QUANTITY:15 INJECTION(S);?
     Route: 030
     Dates: start: 20160606, end: 20160630
  3. MYULTIVITAMIN [Concomitant]
  4. ADDERALL [Concomitant]
     Active Substance: AMPHETAMINE ASPARTATE\AMPHETAMINE SULFATE\DEXTROAMPHETAMINE SACCHARATE\DEXTROAMPHETAMINE SULFATE

REACTIONS (3)
  - Urticaria [None]
  - Pruritus [None]
  - Injection site urticaria [None]

NARRATIVE: CASE EVENT DATE: 20160711
